FAERS Safety Report 5385936-X (Version None)
Quarter: 2007Q3

REPORT INFORMATION
  Report Type: 
  Country: None (occurrence: None)
  Receive Date: 20070710
  Receipt Date: 20070627
  Transmission Date: 20080115
  Serious: Yes (Hospitalization)
  Sender: FDA-Public Use
  Company Number: GXKR2007JP05509

PATIENT
  Age: 59 Year
  Sex: Male

DRUGS (2)
  1. ASPIRIN [Suspect]
     Indication: CEREBRAL INFARCTION
     Dosage: 100 MG DAILY
  2. HEPARIN [Concomitant]

REACTIONS (4)
  - BACK PAIN [None]
  - COUGH [None]
  - MEDIASTINAL HAEMORRHAGE [None]
  - PLEURAL EFFUSION [None]
